FAERS Safety Report 10750279 (Version 2)
Quarter: 2015Q1

REPORT INFORMATION
  Report Type: Spontaneous
  Country: DE (occurrence: DE)
  Receive Date: 20150129
  Receipt Date: 20150130
  Transmission Date: 20150721
  Serious: Yes (Hospitalization, Other)
  Sender: FDA-Public Use
  Company Number: PHHY2013DE163394

PATIENT
  Age: 14 Year
  Sex: Female

DRUGS (1)
  1. CLOZAPINE. [Suspect]
     Active Substance: CLOZAPINE
     Indication: PRODUCT USED FOR UNKNOWN INDICATION
     Dosage: 3000 MG, UNK
     Route: 065

REACTIONS (14)
  - Agitation [Unknown]
  - Coma [Unknown]
  - Seizure [Unknown]
  - Depression [Unknown]
  - Pneumonia aspiration [Unknown]
  - Loss of consciousness [Unknown]
  - Respiratory depression [Unknown]
  - Pyrexia [Unknown]
  - Overdose [Unknown]
  - Toxicity to various agents [Unknown]
  - Tachycardia [Unknown]
  - Pancreatitis [Unknown]
  - Rhabdomyolysis [Unknown]
  - Renal failure [Unknown]
